FAERS Safety Report 25553069 (Version 1)
Quarter: 2025Q3

REPORT INFORMATION
  Report Type: Spontaneous
  Country: EU (occurrence: EU)
  Receive Date: 20250715
  Receipt Date: 20250715
  Transmission Date: 20251021
  Serious: Yes (Other)
  Sender: ROCHE
  Company Number: None

PATIENT
  Age: 36 Year
  Sex: Female

DRUGS (2)
  1. RITUXIMAB [Suspect]
     Active Substance: RITUXIMAB
     Indication: Multiple sclerosis
     Route: 065
     Dates: start: 2017, end: 2023
  2. OCREVUS [Concomitant]
     Active Substance: OCRELIZUMAB
     Indication: Multiple sclerosis
     Route: 065

REACTIONS (10)
  - Atypical pneumonia [Unknown]
  - COVID-19 pneumonia [Unknown]
  - Muscle spasticity [Unknown]
  - Mobility decreased [Unknown]
  - Incontinence [Unknown]
  - Influenza [Unknown]
  - Urinary tract infection [Unknown]
  - Back pain [Unknown]
  - Depression [Unknown]
  - Off label use [Unknown]
